FAERS Safety Report 9553539 (Version 1)
Quarter: 2013Q3

REPORT INFORMATION
  Report Type: Spontaneous
  Country: FR (occurrence: FR)
  Receive Date: 20130925
  Receipt Date: 20130925
  Transmission Date: 20140515
  Serious: Yes (Hospitalization, Other)
  Sender: FDA-Public Use
  Company Number: FR-JNJFOC-20130913743

PATIENT
  Age: 79 Year
  Sex: Male

DRUGS (7)
  1. XARELTO [Suspect]
     Indication: CEREBROVASCULAR ACCIDENT PROPHYLAXIS
     Route: 048
     Dates: end: 20130717
  2. XARELTO [Suspect]
     Indication: CEREBROVASCULAR ACCIDENT PROPHYLAXIS
     Route: 048
     Dates: start: 20130728, end: 20130810
  3. XARELTO [Suspect]
     Indication: ATRIAL FIBRILLATION
     Route: 048
     Dates: end: 20130717
  4. XARELTO [Suspect]
     Indication: ATRIAL FIBRILLATION
     Route: 048
     Dates: start: 20130728, end: 20130810
  5. PREVISCAN (FLUINDIONE) [Concomitant]
     Route: 065
     Dates: start: 20130822
  6. CALCIPARINE [Concomitant]
     Route: 065
     Dates: start: 20130810
  7. LOVENOX [Concomitant]
     Route: 065
     Dates: end: 20130728

REACTIONS (1)
  - Thrombocytopenia [Recovered/Resolved]
